FAERS Safety Report 26140013 (Version 1)
Quarter: 2025Q4

REPORT INFORMATION
  Report Type: Spontaneous
  Country: US (occurrence: None)
  Receive Date: 20251209
  Receipt Date: 20251209
  Transmission Date: 20260118
  Serious: Yes (Other)
  Sender: FDA-CTU
  Company Number: None

PATIENT
  Age: 44 Year
  Sex: Male
  Weight: 72.9 kg

DRUGS (1)
  1. ZOLPIDEM [Suspect]
     Active Substance: ZOLPIDEM TARTRATE
     Indication: Product used for unknown indication
     Dosage: OTHER QUANTITY : 30 TABLET(S);?FREQUENCY : AT BEDTIME;
     Route: 048
     Dates: end: 20250623

REACTIONS (7)
  - Sedation [None]
  - Hypersomnia [None]
  - Communication disorder [None]
  - Aphasia [None]
  - Loss of personal independence in daily activities [None]
  - Depressed level of consciousness [None]
  - Slow response to stimuli [None]

NARRATIVE: CASE EVENT DATE: 20250607
